FAERS Safety Report 21361090 (Version 1)
Quarter: 2022Q3

REPORT INFORMATION
  Report Type: Spontaneous
  Country: US (occurrence: US)
  Receive Date: 20220921
  Receipt Date: 20220921
  Transmission Date: 20221026
  Serious: Yes (Hospitalization, Other)
  Sender: FDA-Public Use
  Company Number: US-PFIZER INC-PV202200066633

PATIENT
  Age: 30 Year
  Sex: Female

DRUGS (1)
  1. SOLU-MEDROL [Suspect]
     Active Substance: METHYLPREDNISOLONE SODIUM SUCCINATE
     Dosage: UNK

REACTIONS (6)
  - Hypertension [Unknown]
  - Bradycardia [Unknown]
  - Headache [Unknown]
  - Chest pain [Unknown]
  - Vision blurred [Unknown]
  - Tinnitus [Unknown]
